FAERS Safety Report 22792546 (Version 3)
Quarter: 2023Q4

REPORT INFORMATION
  Report Type: Spontaneous
  Country: JP (occurrence: JP)
  Receive Date: 20230807
  Receipt Date: 20231207
  Transmission Date: 20240110
  Serious: Yes (Hospitalization)
  Sender: FDA-Public Use
  Company Number: JP-MSD-M2023-31290

PATIENT
  Age: 91 Year
  Sex: Female

DRUGS (1)
  1. LAGEVRIO [Suspect]
     Active Substance: MOLNUPIRAVIR
     Indication: COVID-19 treatment
     Dosage: 800 MILLIGRAM, BID
     Route: 048

REACTIONS (4)
  - Hospitalisation [Unknown]
  - Oropharyngeal discolouration [Unknown]
  - Sputum discoloured [Unknown]
  - Wrong technique in product usage process [Unknown]
